FAERS Safety Report 10158582 (Version 2)
Quarter: 2014Q2

REPORT INFORMATION
  Report Type: Spontaneous
  Country: FR (occurrence: FR)
  Receive Date: 20140508
  Receipt Date: 20140528
  Transmission Date: 20141212
  Serious: Yes (Hospitalization)
  Sender: FDA-Public Use
  Company Number: FR-ROCHE-1393220

PATIENT
  Age: 46 Year
  Sex: Female

DRUGS (7)
  1. ROACTEMRA [Suspect]
     Indication: RHEUMATOID ARTHRITIS
     Route: 041
     Dates: start: 20111213, end: 201204
  2. ROACTEMRA [Suspect]
     Route: 041
     Dates: start: 20120502
  3. ROACTEMRA [Suspect]
     Route: 042
     Dates: start: 20140514
  4. IMETH [Suspect]
     Indication: RHEUMATOID ARTHRITIS
     Route: 065
  5. SPECIAFOLDINE [Suspect]
     Indication: RHEUMATOID ARTHRITIS
     Route: 065
  6. TRAMADOL [Suspect]
     Indication: RHEUMATOID ARTHRITIS
     Route: 065
  7. PARACETAMOL [Suspect]
     Indication: RHEUMATOID ARTHRITIS
     Route: 065

REACTIONS (3)
  - Proctitis [Unknown]
  - Abdominal pain [Recovered/Resolved]
  - Diarrhoea [Recovered/Resolved]
